FAERS Safety Report 5479984-9 (Version None)
Quarter: 2007Q4

REPORT INFORMATION
  Report Type: 
  Country: None (occurrence: None)
  Receive Date: 20071008
  Receipt Date: 20070928
  Transmission Date: 20080405
  Serious: Yes (Hospitalization)
  Sender: FDA-Public Use
  Company Number: FR-ABBOTT-07P-056-0418888-00

PATIENT
  Sex: Female

DRUGS (4)
  1. LIPANTHYL [Suspect]
     Indication: HYPERLIPIDAEMIA
     Route: 048
     Dates: start: 20070621
  2. SIMVASTATIN [Suspect]
     Indication: HYPERLIPIDAEMIA
     Route: 048
     Dates: start: 20070711
  3. BI PREDONIUM [Concomitant]
     Indication: HYPERTENSION
     Route: 048
  4. STRONTIUM RANELATE [Concomitant]
     Indication: OSTEOPOROSIS
     Route: 048
     Dates: start: 20070701

REACTIONS (3)
  - ECZEMA [None]
  - PHOTOSENSITIVITY REACTION [None]
  - RASH PAPULAR [None]
